FAERS Safety Report 9026820 (Version 1)
Quarter: 2013Q1

REPORT INFORMATION
  Report Type: Spontaneous
  Country: GB (occurrence: None)
  Receive Date: 20130109
  Receipt Date: 20130109
  Transmission Date: 20140127
  Serious: Yes (Hospitalization, Other)
  Sender: FDA-Public Use
  Company Number: DSA_61772_2013

PATIENT
  Age: 9 Year
  Sex: Female
  Weight: 20 kg

DRUGS (6)
  1. ENALAPRIL MALEATE (ENALAPRIL MALEATE) [Suspect]
     Indication: HYPERTENSION
     Route: 048
  2. ALFACALCIDOL [Concomitant]
  3. AMOXICILLIN [Concomitant]
  4. IRON [Concomitant]
  5. MYCOPHENOLATE MOFETIL [Concomitant]
  6. PREDNISOLONE [Concomitant]

REACTIONS (4)
  - Dehydration [None]
  - Diarrhoea [None]
  - Vomiting [None]
  - Renal failure acute [None]
